FAERS Safety Report 15641789 (Version 4)
Quarter: 2021Q4

REPORT INFORMATION
  Report Type: Other
  Country: CA (occurrence: CA)
  Receive Date: 20181121
  Receipt Date: 20211125
  Transmission Date: 20220303
  Serious: Yes (Other)
  Sender: FDA-Public Use
  Company Number: CA-002147023-PHHY2012CA072600

PATIENT
  Age: 49 Year
  Sex: Male

DRUGS (9)
  1. XOLAIR [Suspect]
     Active Substance: OMALIZUMAB
     Indication: Asthma
     Route: 058
     Dates: start: 20120709
  2. XOLAIR [Suspect]
     Active Substance: OMALIZUMAB
     Route: 058
     Dates: start: 20120808
  3. SYMBICORT [Concomitant]
     Active Substance: BUDESONIDE\FORMOTEROL FUMARATE DIHYDRATE
     Indication: Asthma
     Dosage: 4 PUFF, QD
     Route: 065
  4. SYMBICORT [Concomitant]
     Active Substance: BUDESONIDE\FORMOTEROL FUMARATE DIHYDRATE
     Dosage: 6 PUFFS, QD
     Route: 065
  5. SINGULAIR [Concomitant]
     Active Substance: MONTELUKAST SODIUM
     Indication: Product used for unknown indication
     Route: 065
  6. WARFARIN [Concomitant]
     Active Substance: WARFARIN
     Indication: Product used for unknown indication
     Route: 065
  7. TESTOSTERONE [Concomitant]
     Active Substance: TESTOSTERONE
     Indication: Product used for unknown indication
     Route: 065
  8. LOSEC [Concomitant]
     Active Substance: OMEPRAZOLE
     Indication: Product used for unknown indication
     Route: 065
  9. VENTOLIN [Concomitant]
     Active Substance: ALBUTEROL SULFATE
     Indication: Product used for unknown indication
     Route: 065

REACTIONS (29)
  - Atrial fibrillation [Unknown]
  - Haemorrhage [Unknown]
  - Migraine [Unknown]
  - Nasal congestion [Unknown]
  - Sleep apnoea syndrome [Unknown]
  - Tinnitus [Recovering/Resolving]
  - Wheezing [Unknown]
  - Sleep disorder [Unknown]
  - Obstructive airways disorder [Unknown]
  - Contusion [Unknown]
  - Forced expiratory volume decreased [Unknown]
  - Seasonal allergy [Unknown]
  - Allergy to animal [Unknown]
  - Dust allergy [Unknown]
  - Mycotic allergy [Unknown]
  - Temperature intolerance [Unknown]
  - Discomfort [Unknown]
  - Chest discomfort [Unknown]
  - Occupational exposure to dust [Unknown]
  - Sensitivity to weather change [Unknown]
  - Perfume sensitivity [Unknown]
  - Dyspnoea [Unknown]
  - Pain in extremity [Unknown]
  - Application site pain [Unknown]
  - Cough [Unknown]
  - Sinusitis [Unknown]
  - Headache [Unknown]
  - Asthma [Not Recovered/Not Resolved]
  - Drug hypersensitivity [Unknown]

NARRATIVE: CASE EVENT DATE: 20120808
